FAERS Safety Report 21142684 (Version 1)
Quarter: 2022Q3

REPORT INFORMATION
  Report Type: Spontaneous
  Country: US (occurrence: US)
  Receive Date: 20220728
  Receipt Date: 20220728
  Transmission Date: 20221026
  Serious: Yes (Hospitalization, Other)
  Sender: FDA-Public Use
  Company Number: US-PFIZER INC-202201011046

PATIENT
  Age: 67 Year
  Sex: Female

DRUGS (4)
  1. XANAX [Suspect]
     Active Substance: ALPRAZOLAM
     Indication: Obsessive-compulsive disorder
     Dosage: UNK
     Dates: start: 1997
  2. XANAX [Suspect]
     Active Substance: ALPRAZOLAM
     Indication: Anxiety
  3. XANAX [Suspect]
     Active Substance: ALPRAZOLAM
     Indication: Panic attack
  4. XANAX [Suspect]
     Active Substance: ALPRAZOLAM
     Indication: Phobia

REACTIONS (2)
  - Illness [Unknown]
  - Drug dependence [Unknown]
